FAERS Safety Report 6568483-9 (Version None)
Quarter: 2010Q1

REPORT INFORMATION
  Report Type: 
  Country: None (occurrence: None)
  Receive Date: 20100129
  Receipt Date: 20100125
  Transmission Date: 20100710
  Serious: Yes (Hospitalization)
  Sender: FDA-Public Use
  Company Number: A0841364A

PATIENT
  Age: 68 Year
  Sex: Male

DRUGS (7)
  1. ASPIRIN [Suspect]
  2. BORTEZOMIB INJECTION (BORTEZOMIB) [Suspect]
     Indication: ACUTE MYELOID LEUKAEMIA
     Dosage: 1.3 MG/M2 / CYCLIC
  3. CYTARABINE SOLUTION (CYTARABINE) [Suspect]
     Indication: ACUTE MYELOID LEUKAEMIA
     Dosage: 100 MG/M2 / CYCLIC
     Dates: start: 20091021
  4. DAUNORUBICIN HCL [Suspect]
     Indication: ACUTE MYELOID LEUKAEMIA
     Dosage: 60 MG/M2 / CYCLIC
     Dates: start: 20091021
  5. GABAPENTIN [Suspect]
  6. CLOPIDOGREL BISULFATE [Suspect]
     Dates: end: 20091230
  7. ENALAPRIL MALEATE [Suspect]

REACTIONS (13)
  - AUTONOMIC NERVOUS SYSTEM IMBALANCE [None]
  - CEREBRAL INFARCTION [None]
  - CONTUSION [None]
  - FALL [None]
  - HAEMATOCRIT DECREASED [None]
  - HAEMATOMA [None]
  - HAEMOGLOBIN DECREASED [None]
  - ORTHOSTATIC HYPOTENSION [None]
  - PERIPHERAL SENSORY NEUROPATHY [None]
  - PLATELET COUNT DECREASED [None]
  - SUBARACHNOID HAEMORRHAGE [None]
  - SYNCOPE [None]
  - TRAUMATIC INTRACRANIAL HAEMORRHAGE [None]
